FAERS Safety Report 8977041 (Version 6)
Quarter: 2013Q3

REPORT INFORMATION
  Report Type: Spontaneous
  Country: US (occurrence: US)
  Receive Date: 20121220
  Receipt Date: 20130725
  Transmission Date: 20140515
  Serious: Yes (Other)
  Sender: FDA-Public Use
  Company Number: US-009507513-1212USA007590

PATIENT
  Sex: Female
  Weight: 63.95 kg

DRUGS (2)
  1. FOSAMAX [Suspect]
     Indication: OSTEOPENIA
     Dosage: 70 MG, QW
     Route: 048
     Dates: start: 2000, end: 201006
  2. ALENDRONATE SODIUM [Suspect]
     Dosage: 70 MG, UNK

REACTIONS (8)
  - Skin cancer [Unknown]
  - Osteonecrosis of jaw [Unknown]
  - Tooth disorder [Unknown]
  - Irritable bowel syndrome [Unknown]
  - Macular degeneration [Unknown]
  - Hyperlipidaemia [Unknown]
  - Meniscus operation [Unknown]
  - Dental caries [Unknown]
